FAERS Safety Report 17570785 (Version 1)
Quarter: 2020Q1

REPORT INFORMATION
  Report Type: Spontaneous
  Country: ES (occurrence: ES)
  Receive Date: 20200323
  Receipt Date: 20200323
  Transmission Date: 20200409
  Serious: Yes (Hospitalization)
  Sender: FDA-Public Use
  Company Number: NVSC2020ES076100

PATIENT
  Age: 78 Year
  Sex: Male

DRUGS (1)
  1. PIPERACILINA + TAZOBACTAM SANDOZ [Suspect]
     Active Substance: PIPERACILLIN SODIUM\TAZOBACTAM SODIUM
     Indication: EVIDENCE BASED TREATMENT
     Dosage: 4 G, Q6H
     Route: 042
     Dates: start: 20190118, end: 20190121

REACTIONS (1)
  - Antibiotic associated colitis [Recovered/Resolved]

NARRATIVE: CASE EVENT DATE: 20190120
